FAERS Safety Report 5960291-2 (Version None)
Quarter: 2008Q4

REPORT INFORMATION
  Report Type: 
  Country: None (occurrence: None)
  Receive Date: 20081118
  Receipt Date: 20081118
  Transmission Date: 20090506
  Serious: No
  Sender: FDA-Public Use
  Company Number: None

PATIENT
  Sex: Male
  Weight: 74.3899 kg

DRUGS (3)
  1. ABILIFY [Suspect]
     Indication: DEPRESSION
     Dosage: 5MG 1 TIME PER EVE PO
     Route: 048
     Dates: start: 20080619
  2. TOFRANIL-PM [Suspect]
     Indication: ANGER
     Dosage: 75MG 1 TIME PER EVE PO
     Route: 048
     Dates: start: 20080619
  3. TOFRANIL-PM [Suspect]
     Indication: INSOMNIA
     Dosage: 75MG 1 TIME PER EVE PO
     Route: 048
     Dates: start: 20080619

REACTIONS (4)
  - DIABETES MELLITUS [None]
  - INSOMNIA [None]
  - MUSCLE TWITCHING [None]
  - NOCTURIA [None]
